FAERS Safety Report 24872563 (Version 2)
Quarter: 2025Q1

REPORT INFORMATION
  Report Type: Spontaneous
  Country: FR (occurrence: FR)
  Receive Date: 20250122
  Receipt Date: 20250217
  Transmission Date: 20250409
  Serious: Yes (Other)
  Sender: TAKEDA
  Company Number: FR-TAKEDA-2025TUS005453

PATIENT
  Age: 76 Year

DRUGS (3)
  1. ENTYVIO [Suspect]
     Active Substance: VEDOLIZUMAB
     Indication: Colitis ulcerative
  2. EZETIMIBE\ROSUVASTATIN [Suspect]
     Active Substance: EZETIMIBE\ROSUVASTATIN
     Indication: Infarction
  3. LIPTRUZET [Suspect]
     Active Substance: ATORVASTATIN CALCIUM\EZETIMIBE
     Indication: Infarction

REACTIONS (4)
  - Infarction [Unknown]
  - Hepatic cytolysis [Unknown]
  - Blood creatine phosphokinase increased [Unknown]
  - Muscle spasms [Unknown]
